FAERS Safety Report 24462883 (Version 1)
Quarter: 2024Q4

REPORT INFORMATION
  Report Type: Spontaneous
  Country: JP (occurrence: JP)
  Receive Date: 20241018
  Receipt Date: 20241018
  Transmission Date: 20250115
  Serious: Yes (Other)
  Sender: NOVARTIS
  Company Number: JP-002147023-NVSJ2024JP012273

PATIENT
  Age: 63 Year
  Sex: Female

DRUGS (2)
  1. CYCLOSPORINE [Suspect]
     Active Substance: CYCLOSPORINE
     Indication: Toxic skin eruption
     Dosage: 50 MG
     Route: 048
  2. MOMETASONE FUROATE [Concomitant]
     Active Substance: MOMETASONE FUROATE
     Indication: Toxic skin eruption
     Dosage: 137.5 UG
     Route: 061

REACTIONS (3)
  - Immune thrombocytopenia [Recovering/Resolving]
  - Petechiae [Recovering/Resolving]
  - Hepatic function abnormal [Unknown]
